FAERS Safety Report 11073155 (Version 1)
Quarter: 2015Q2

REPORT INFORMATION
  Report Type: Spontaneous
  Country: TR (occurrence: TR)
  Receive Date: 20150428
  Receipt Date: 20150428
  Transmission Date: 20150821
  Serious: Yes (Hospitalization, Other)
  Sender: FDA-Public Use
  Company Number: TR-TAKEDA-2015TUS005426

PATIENT
  Age: 15 Year
  Sex: Female

DRUGS (1)
  1. COLCHICINE. [Suspect]
     Active Substance: COLCHICINE
     Indication: ACCIDENTAL EXPOSURE TO PRODUCT
     Dosage: 10 MG (20 TABLETS)
     Route: 065

REACTIONS (14)
  - Leukocytosis [Recovering/Resolving]
  - Hepatic function abnormal [Recovering/Resolving]
  - Pyrexia [Recovering/Resolving]
  - Vomiting [Recovering/Resolving]
  - Toxicity to various agents [Recovering/Resolving]
  - Gastroenteritis [Recovering/Resolving]
  - Alopecia [Unknown]
  - Pancytopenia [Recovering/Resolving]
  - Suicide attempt [Recovering/Resolving]
  - Thrombocytosis [Recovering/Resolving]
  - Acute kidney injury [Recovering/Resolving]
  - Abdominal pain [Recovering/Resolving]
  - Intentional overdose [Recovering/Resolving]
  - Metabolic acidosis [Recovering/Resolving]
